FAERS Safety Report 7636721-7 (Version None)
Quarter: 2011Q3

REPORT INFORMATION
  Report Type: 
  Country: None (occurrence: None)
  Receive Date: 20110719
  Receipt Date: 20110701
  Transmission Date: 20111222
  Serious: Yes (Hospitalization)
  Sender: FDA-Public Use
  Company Number: ZYD-11-AE-080

PATIENT
  Age: 82 Year
  Sex: Male

DRUGS (22)
  1. AZATHIOPRINE [Suspect]
     Indication: MYASTHENIA GRAVIS
     Dosage: 50 MG, DAILY, ORAL
     Route: 048
     Dates: start: 20110101
  2. PLAVIX [Concomitant]
  3. MESTINON [Concomitant]
  4. IMURAN [Concomitant]
  5. ASPIRIN [Concomitant]
  6. UROXATRAL [Concomitant]
  7. CLONAZEPAM [Concomitant]
  8. MULTI-VITAMIN [Concomitant]
  9. BISOPOROLOL [Concomitant]
  10. PAIN PUMP [Concomitant]
  11. LOMOTIL [Concomitant]
  12. FLEXERIL [Concomitant]
  13. COZAAR [Concomitant]
  14. ZOCOR [Concomitant]
  15. SODIUM BICARBONATE [Concomitant]
  16. PREDNISONE [Concomitant]
  17. VITAMIN D [Concomitant]
  18. OMEGA FISH OIL [Concomitant]
  19. NEXIUM [Concomitant]
  20. QUININE SULFATE [Concomitant]
  21. ASCORBIC ACID [Concomitant]
  22. GLUCOSAMINE SULFATE [Concomitant]

REACTIONS (4)
  - CHILLS [None]
  - MOVEMENT DISORDER [None]
  - TEMPERATURE REGULATION DISORDER [None]
  - PARALYSIS [None]
